FAERS Safety Report 5309592-1 (Version None)
Quarter: 2007Q2

REPORT INFORMATION
  Report Type: 
  Country: None (occurrence: None)
  Receive Date: 20070424
  Receipt Date: 20070412
  Transmission Date: 20071010
  Serious: Yes (Other)
  Sender: FDA-Public Use
  Company Number: CERZ-11621

PATIENT
  Age: 52 Year
  Sex: Male
  Weight: 108 kg

DRUGS (1)
  1. CEREZYME [Suspect]
     Indication: GAUCHER'S DISEASE
     Dosage: 4800 UNITS Q2WKS IV
     Route: 042
     Dates: start: 19980701

REACTIONS (1)
  - CEREBROVASCULAR ACCIDENT [None]
